FAERS Safety Report 7506924-0 (Version None)
Quarter: 2011Q2

REPORT INFORMATION
  Report Type: 
  Country: None (occurrence: None)
  Receive Date: 20110415
  Receipt Date: 20110120
  Transmission Date: 20111010
  Serious: Yes (Other)
  Sender: FDA-Public Use
  Company Number: 11-000072

PATIENT
  Age: 33 Year
  Sex: Female
  Weight: 61.2 kg

DRUGS (1)
  1. LOESTRIN 24 FE [Suspect]
     Dosage: 20/1000 UG, QD
     Dates: start: 20090401, end: 20090501

REACTIONS (3)
  - THROMBOSIS [None]
  - NAUSEA [None]
  - OEDEMA PERIPHERAL [None]
